FAERS Safety Report 8300149-7 (Version None)
Quarter: 2012Q2

REPORT INFORMATION
  Report Type: 
  Country: None (occurrence: None)
  Receive Date: 20120420
  Receipt Date: 20120417
  Transmission Date: 20120825
  Serious: No
  Sender: FDA-Public Use
  Company Number: US-PFIZER INC-2012096244

PATIENT
  Sex: Female
  Weight: 58.957 kg

DRUGS (5)
  1. IBUPROFEN [Suspect]
     Indication: ARTHRITIS
     Dosage: 400 MG, AS NEEDED
     Route: 048
  2. IBUPROFEN [Suspect]
     Indication: SPONDYLITIS
  3. LOPRESSOR [Concomitant]
     Indication: BLOOD PRESSURE ABNORMAL
     Dosage: 50 MG, 2X/DAY
  4. NAPROXEN (ALEVE) [Concomitant]
     Indication: SPONDYLITIS
  5. NAPROXEN (ALEVE) [Concomitant]
     Indication: ARTHRITIS
     Dosage: UNK, AS NEEDED

REACTIONS (1)
  - DRUG INEFFECTIVE [None]
